FAERS Safety Report 23569324 (Version 3)
Quarter: 2024Q3

REPORT INFORMATION
  Report Type: Report from Study
  Country: US (occurrence: US)
  Receive Date: 20240227
  Receipt Date: 20240803
  Transmission Date: 20241016
  Serious: Yes (Hospitalization, Other)
  Sender: ABBVIE
  Company Number: US-ABBVIE-5653610

PATIENT
  Sex: Female

DRUGS (1)
  1. SKYRIZI [Suspect]
     Active Substance: RISANKIZUMAB-RZAA
     Indication: Psoriasis
     Route: 058
     Dates: start: 20220222

REACTIONS (5)
  - Surgery [Recovering/Resolving]
  - Psoriasis [Unknown]
  - Wound closure [Recovering/Resolving]
  - Agitation [Unknown]
  - Stress [Unknown]
